FAERS Safety Report 10494685 (Version 3)
Quarter: 2014Q4

REPORT INFORMATION
  Report Type: Spontaneous
  Country: US (occurrence: None)
  Receive Date: 20141001
  Receipt Date: 20141210
  Transmission Date: 20150528
  Serious: Yes (Other)
  Sender: FDA-Public Use
  Company Number: 3126564

PATIENT
  Sex: Male

DRUGS (1)
  1. BLINK TEARS [Suspect]
     Active Substance: POLYETHYLENE GLYCOL 400
     Indication: DRY EYE
     Route: 047
     Dates: start: 20140910, end: 20140913

REACTIONS (12)
  - Swelling face [None]
  - Eyelid oedema [None]
  - Eye irritation [None]
  - Cough [None]
  - Pyrexia [None]
  - Oral herpes [None]
  - Hypersensitivity [None]
  - Herpes zoster [None]
  - Skin disorder [None]
  - Infection reactivation [None]
  - Eye pruritus [None]
  - Ear swelling [None]

NARRATIVE: CASE EVENT DATE: 20140913
